FAERS Safety Report 5448786-1 (Version None)
Quarter: 2007Q3

REPORT INFORMATION
  Report Type: 
  Country: None (occurrence: None)
  Receive Date: 20070911
  Receipt Date: 20070612
  Transmission Date: 20080115
  Serious: No
  Sender: FDA-Public Use
  Company Number: US-BRISTOL-MYERS SQUIBB COMPANY-13811344

PATIENT
  Sex: Female
  Weight: 66 kg

DRUGS (4)
  1. EMSAM [Suspect]
     Indication: DEPRESSION
     Route: 062
  2. KLONOPIN [Concomitant]
  3. SEROQUEL [Concomitant]
  4. ENCORTON [Concomitant]

REACTIONS (1)
  - APPLICATION SITE REACTION [None]
